FAERS Safety Report 25537959 (Version 1)
Quarter: 2025Q3

REPORT INFORMATION
  Report Type: Spontaneous
  Country: US (occurrence: US)
  Receive Date: 20250710
  Receipt Date: 20250710
  Transmission Date: 20251021
  Serious: Yes (Other)
  Sender: GLAXOSMITHKLINE
  Company Number: US-GLAXOSMITHKLINE INC-US2025083968

PATIENT
  Age: 49 Year
  Sex: Female
  Weight: 130.18 kg

DRUGS (1)
  1. BENLYSTA [Suspect]
     Active Substance: BELIMUMAB
     Indication: Systemic lupus erythematosus

REACTIONS (9)
  - Neuropathy peripheral [Unknown]
  - Systemic lupus erythematosus rash [Unknown]
  - Memory impairment [Unknown]
  - Skin irritation [Unknown]
  - Weight increased [Unknown]
  - Joint swelling [Unknown]
  - Chest pain [Unknown]
  - Pruritus [Unknown]
  - Product dose omission issue [Unknown]

NARRATIVE: CASE EVENT DATE: 20250101
